FAERS Safety Report 5931035-5 (Version None)
Quarter: 2008Q4

REPORT INFORMATION
  Report Type: 
  Country: None (occurrence: None)
  Receive Date: 20081021
  Receipt Date: 20081014
  Transmission Date: 20090506
  Serious: Yes (Other)
  Sender: FDA-Public Use
  Company Number: 6046413

PATIENT
  Age: 79 Year
  Sex: Female

DRUGS (3)
  1. BISOPROLOL FUMARATE AND HYDROCHLOROTHIAZIDE [Suspect]
     Indication: HYPERTENSION
     Dosage: 2 DOSAGE FORMS (2 DOSAGE FORMS, 1 IN 1 D) ORAL
     Route: 048
  2. FEMARA [Concomitant]
  3. COUMADIN [Concomitant]

REACTIONS (2)
  - DRUG DOSE OMISSION [None]
  - HYPERTENSION [None]
